FAERS Safety Report 4796500-5 (Version None)
Quarter: 2005Q4

REPORT INFORMATION
  Report Type: 
  Country: None (occurrence: None)
  Receive Date: 20051013
  Receipt Date: 20051003
  Transmission Date: 20060501
  Serious: Yes (Hospitalization)
  Sender: FDA-Public Use
  Company Number: FR-JNJFOC-20051000377

PATIENT
  Age: 51 Year
  Sex: Female

DRUGS (6)
  1. RISPERDAL [Suspect]
     Indication: PSYCHOTIC DISORDER
     Route: 048
     Dates: start: 20050728, end: 20050818
  2. TEGRETOL [Suspect]
     Indication: PSYCHOTIC DISORDER
     Route: 065
     Dates: start: 20050721, end: 20050818
  3. ATARAX [Concomitant]
     Indication: ANXIETY
     Route: 065
  4. IMOVANE [Concomitant]
     Indication: SLEEP DISORDER
     Route: 065
  5. LEVOTHYROX [Concomitant]
     Indication: HYPOTHYROIDISM
     Route: 065
  6. NOCTAMIDE [Concomitant]
     Indication: SLEEP DISORDER
     Route: 065

REACTIONS (3)
  - PRURITUS [None]
  - RASH ERYTHEMATOUS [None]
  - TOXIC SKIN ERUPTION [None]
